FAERS Safety Report 12728106 (Version 1)
Quarter: 2016Q3

REPORT INFORMATION
  Report Type: Spontaneous
  Country: US (occurrence: US)
  Receive Date: 20160906
  Receipt Date: 20160906
  Transmission Date: 20161109
  Serious: No
  Sender: FDA-Public Use
  Company Number: None

PATIENT
  Age: 68 Year
  Sex: Female
  Weight: 56.25 kg

DRUGS (3)
  1. PRAVACHOL [Concomitant]
     Active Substance: PRAVASTATIN SODIUM
  2. RECEDO [Suspect]
     Active Substance: SILICON DIOXIDE
     Indication: SCAR
     Dosage: OTHER STRENGTH:;OTHER DOSE:1 DAB OF GEL;OTHER FREQUENCY:;OTHER ROUTE:
     Route: 061
     Dates: start: 20160808, end: 20160812
  3. ONE-A-DAY VITAMIN [Concomitant]

REACTIONS (1)
  - Skin discolouration [None]

NARRATIVE: CASE EVENT DATE: 20160818
